FAERS Safety Report 8230610-5 (Version None)
Quarter: 2012Q1

REPORT INFORMATION
  Report Type: 
  Country: None (occurrence: None)
  Receive Date: 20120320
  Receipt Date: 20120312
  Transmission Date: 20120608
  Serious: Yes (Other)
  Sender: FDA-Public Use
  Company Number: AUR-APL-2012-00910

PATIENT
  Age: 82 Year
  Sex: Male

DRUGS (2)
  1. NORVASC [Suspect]
     Indication: PRODUCT USED FOR UNKNOWN INDICATION
     Dosage: 1 DOSAGE FORMS ( 1 DOSAGE FORMS, 1 N 1 D), ORAL
     Route: 048
     Dates: start: 20110109, end: 20120108
  2. RAMIPRIL [Suspect]
     Indication: PRODUCT USED FOR UNKNOWN INDICATION
     Dosage: 1 DOSAGE FORMS (1 DOSAGE FORMS, 1 IN 1 D) ORAL
     Route: 048
     Dates: start: 20110109, end: 20120108

REACTIONS (2)
  - PRESYNCOPE [None]
  - HYPOTENSION [None]
